FAERS Safety Report 5131745-6 (Version None)
Quarter: 2006Q4

REPORT INFORMATION
  Report Type: 
  Country: None (occurrence: None)
  Receive Date: 20061016
  Receipt Date: 20061004
  Transmission Date: 20070319
  Serious: Yes (Death)
  Sender: FDA-Public Use
  Company Number: CERZ-11342

PATIENT
  Age: 38 Year
  Sex: Female
  Weight: 60 kg

DRUGS (1)
  1. CEREZYME [Suspect]
     Indication: GAUCHER'S DISEASE
     Dosage: 60 UG/KG Q2WKS IV
     Route: 042
     Dates: start: 20060424, end: 20060424

REACTIONS (2)
  - CARDIAC ARREST [None]
  - SPLEEN DISORDER [None]
